FAERS Safety Report 7222629-8 (Version None)
Quarter: 2011Q1

REPORT INFORMATION
  Report Type: 
  Country: None (occurrence: None)
  Receive Date: 20110106
  Receipt Date: 20110106
  Transmission Date: 20110831
  Serious: No
  Sender: FDA-Public Use
  Company Number: None

PATIENT
  Age: 61 Year
  Sex: Female
  Weight: 50.8029 kg

DRUGS (2)
  1. SERTRALINE HYDROCHLORIDE [Suspect]
     Indication: TINNITUS
     Dosage: 2 TABLETS DAILY PO
     Route: 048
     Dates: start: 20050101, end: 20100901
  2. SERTRALINE HYDROCHLORIDE [Suspect]
     Indication: DEPRESSION
     Dosage: 2 TABLETS DAILY PO
     Route: 048
     Dates: start: 20050101, end: 20100901

REACTIONS (5)
  - LOSS OF DREAMING [None]
  - INSOMNIA [None]
  - MENTAL DISORDER [None]
  - GENERAL PHYSICAL CONDITION ABNORMAL [None]
  - SLEEP APNOEA SYNDROME [None]
